FAERS Safety Report 8092225-1 (Version None)
Quarter: 2012Q1

REPORT INFORMATION
  Report Type: 
  Country: None (occurrence: None)
  Receive Date: 20120129
  Receipt Date: 20111104
  Transmission Date: 20120608
  Serious: No
  Sender: FDA-Public Use
  Company Number: US-ABBOTT-11P-163-0871687-00

PATIENT
  Age: 55 Year
  Sex: Female

DRUGS (2)
  1. NORTRIPTYLINE HCL [Concomitant]
     Indication: PRODUCT USED FOR UNKNOWN INDICATION
     Dosage: 20 MG DAILY
  2. HUMIRA [Suspect]
     Indication: RHEUMATOID ARTHRITIS
     Dates: start: 20060101, end: 20060101

REACTIONS (4)
  - DRUG INEFFECTIVE [None]
  - SENSORY DISTURBANCE [None]
  - DIZZINESS [None]
  - HYPOAESTHESIA [None]
